FAERS Safety Report 7669396-1 (Version None)
Quarter: 2011Q3

REPORT INFORMATION
  Report Type: 
  Country: None (occurrence: None)
  Receive Date: 20110808
  Receipt Date: 20110801
  Transmission Date: 20111222
  Serious: Yes (Life-Threatening, Other)
  Sender: FDA-Public Use
  Company Number: US-ROCHE-793507

PATIENT
  Age: 58 Year
  Sex: Female

DRUGS (12)
  1. MYCOPHENOLATE MOFETIL [Suspect]
     Route: 065
  2. RITUXIMAB [Suspect]
     Route: 042
  3. RITUXIMAB [Suspect]
     Route: 042
  4. CYCLOSPORINE [Suspect]
     Route: 065
  5. METHYLPREDNISOLONE [Concomitant]
  6. ACYCLOVIR [Concomitant]
  7. RITUXIMAB [Suspect]
     Route: 042
  8. ACETAMINOPHEN [Concomitant]
  9. DEXAMETHASONE [Concomitant]
  10. DIPHENHYDRAMINE HCL [Concomitant]
  11. PREDNISONE [Suspect]
     Route: 065
  12. RITUXIMAB [Suspect]
     Route: 042

REACTIONS (7)
  - PNEUMONIA BACTERIAL [None]
  - ACUTE RESPIRATORY FAILURE [None]
  - THROMBOCYTOPENIA [None]
  - DEEP VEIN THROMBOSIS [None]
  - CYTOMEGALOVIRUS GASTRITIS [None]
  - ACUTE LUNG INJURY [None]
  - SEPSIS [None]
